FAERS Safety Report 19238999 (Version 1)
Quarter: 2021Q2

REPORT INFORMATION
  Report Type: Spontaneous
  Country: US (occurrence: US)
  Receive Date: 20210510
  Receipt Date: 20210510
  Transmission Date: 20210717
  Serious: No
  Sender: FDA-Public Use
  Company Number: US-GW PHARMA-202104USGW02230

PATIENT

DRUGS (10)
  1. LEVETIRACETAM. [Concomitant]
     Active Substance: LEVETIRACETAM
     Dosage: UNK (STOP DATE: 30 MAY 2021? FUTURE DATE)
     Route: 065
     Dates: start: 20210331
  2. VIMPAT [Concomitant]
     Active Substance: LACOSAMIDE
     Indication: PRODUCT USED FOR UNKNOWN INDICATION
     Dosage: UNK (END DATE: 31 MAY 2021 )
     Route: 065
     Dates: start: 20210302
  3. VIMPAT [Concomitant]
     Active Substance: LACOSAMIDE
     Dosage: UNK (END DATE: 27 JUN 2021 )
     Route: 065
     Dates: start: 20210428
  4. LACTULOSE. [Concomitant]
     Active Substance: LACTULOSE
     Indication: PRODUCT USED FOR UNKNOWN INDICATION
     Dosage: 10 GM/15, (STOP DATE: 10 AUG 2021)
     Route: 065
     Dates: start: 20210211
  5. LORATADINE. [Concomitant]
     Active Substance: LORATADINE
     Indication: PRODUCT USED FOR UNKNOWN INDICATION
     Dosage: UNK (STOP DATE: 07 JUN 2021)
     Route: 065
     Dates: start: 20210408
  6. ALBUTEROL [SALBUTAMOL] [Concomitant]
     Active Substance: ALBUTEROL
     Indication: PRODUCT USED FOR UNKNOWN INDICATION
     Dosage: UNK (STOP DATE: 07 JUN 2021, FORMULATION: NEBULIZER)
     Route: 065
     Dates: start: 20210408
  7. EPIDIOLEX [Suspect]
     Active Substance: CANNABIDIOL
     Indication: LENNOX-GASTAUT SYNDROME
     Dosage: 600 MILLIGRAM, BID
     Route: 048
     Dates: start: 20190213
  8. LEVETIRACETAM. [Concomitant]
     Active Substance: LEVETIRACETAM
     Indication: PRODUCT USED FOR UNKNOWN INDICATION
     Dosage: UNK (STOP DATE: 05 MAY 2021? FUTURE DATE)
     Route: 065
     Dates: start: 20210306
  9. LEVETIRACETAM. [Concomitant]
     Active Substance: LEVETIRACETAM
     Dosage: UNK (END DATE : 25 OCT 2021)
     Route: 065
     Dates: start: 20210428
  10. BUDESONIDE. [Concomitant]
     Active Substance: BUDESONIDE
     Indication: PRODUCT USED FOR UNKNOWN INDICATION
     Dosage: 0.5MG/2, (STOP DATE: 10 MAY 2021)
     Route: 065
     Dates: start: 20201111

REACTIONS (2)
  - Skin discharge [Not Recovered/Not Resolved]
  - Rash papular [Not Recovered/Not Resolved]

NARRATIVE: CASE EVENT DATE: 202102
